FAERS Safety Report 12283700 (Version 1)
Quarter: 2016Q2

REPORT INFORMATION
  Report Type: Spontaneous
  Country: US (occurrence: US)
  Receive Date: 20160419
  Receipt Date: 20160419
  Transmission Date: 20160815
  Serious: No
  Sender: FDA-Public Use
  Company Number: US-BANPHARM-20164668

PATIENT
  Age: 61 Year
  Sex: Female
  Weight: 78.02 kg

DRUGS (2)
  1. ZANTAC [Concomitant]
     Active Substance: RANITIDINE HYDROCHLORIDE
  2. ALEVE [Suspect]
     Active Substance: NAPROXEN SODIUM
     Indication: FIBROMYALGIA
     Dosage: 2 DF, BID,
     Route: 048

REACTIONS (3)
  - Incorrect drug administration duration [Unknown]
  - Abdominal discomfort [Unknown]
  - Malaise [Unknown]
